FAERS Safety Report 17797176 (Version 1)
Quarter: 2020Q2

REPORT INFORMATION
  Report Type: Spontaneous
  Country: JP (occurrence: JP)
  Receive Date: 20200518
  Receipt Date: 20200518
  Transmission Date: 20200714
  Serious: Yes (Hospitalization)
  Sender: FDA-Public Use
  Company Number: JP-TEVA-2020-JP-1236689

PATIENT
  Age: 79 Year
  Sex: Female

DRUGS (1)
  1. BISOPROLOL FUMARATE. [Suspect]
     Active Substance: BISOPROLOL FUMARATE
     Indication: CARDIAC FAILURE CHRONIC
     Route: 065

REACTIONS (3)
  - Cardiac failure [Recovering/Resolving]
  - Bradycardia [Unknown]
  - Condition aggravated [Unknown]
